FAERS Safety Report 14507213 (Version 1)
Quarter: 2018Q1

REPORT INFORMATION
  Report Type: Spontaneous
  Country: US (occurrence: US)
  Receive Date: 20180208
  Receipt Date: 20180208
  Transmission Date: 20180509
  Serious: No
  Sender: FDA-Public Use
  Company Number: US-BAYER-2018-020189

PATIENT
  Age: 47 Year
  Sex: Male
  Weight: 126.98 kg

DRUGS (6)
  1. OMEGA [DOCOSAHEXANOIC ACID,EICOSAPENTAENOIC ACID] [Concomitant]
  2. MIRALAX [Suspect]
     Active Substance: POLYETHYLENE GLYCOL 3350
     Route: 048
  3. PROBIOTICA [Concomitant]
     Active Substance: PROBIOTICS NOS
  4. VITAMIN B12 [Concomitant]
     Active Substance: CYANOCOBALAMIN
  5. ONE A DAY VITACRAVES CHEWY CHOCOLATE BROWNIE [Concomitant]
     Active Substance: MINERALS\VITAMINS
  6. MIRAFIBER POWDER [Suspect]
     Active Substance: METHYLCELLULOSES
     Indication: PRODUCT USED FOR UNKNOWN INDICATION
     Dosage: 1 DOSE ONCE DAILY DOSE
     Route: 048

REACTIONS (4)
  - Expired product administered [Unknown]
  - Off label use [Unknown]
  - Product use in unapproved indication [Unknown]
  - Therapeutic product effective for unapproved indication [Unknown]
